FAERS Safety Report 7787571-2 (Version None)
Quarter: 2011Q3

REPORT INFORMATION
  Report Type: 
  Country: None (occurrence: None)
  Receive Date: 20110929
  Receipt Date: 20110920
  Transmission Date: 20111222
  Serious: Yes (Hospitalization, Disabling, Other)
  Sender: FDA-Public Use
  Company Number: US-ASTRAZENECA-2011SE23143

PATIENT
  Age: 46 Year
  Sex: Female

DRUGS (5)
  1. PLAVIX [Concomitant]
  2. ASPIRIN [Concomitant]
  3. NEXIUM [Suspect]
     Route: 048
  4. CYMBALTA [Concomitant]
  5. BENADRYL [Concomitant]
     Dosage: 3 EARLIER AND THEN 3 AGAIN

REACTIONS (24)
  - NAUSEA [None]
  - RENAL FAILURE [None]
  - ACUTE PRERENAL FAILURE [None]
  - CEREBROVASCULAR ACCIDENT [None]
  - DIZZINESS [None]
  - GASTRIC HAEMORRHAGE [None]
  - PEPTIC ULCER [None]
  - DYSPNOEA [None]
  - JOINT STIFFNESS [None]
  - JOINT SWELLING [None]
  - VOMITING [None]
  - ERYTHEMA [None]
  - GASTRIC ULCER [None]
  - HAEMORRHAGIC ANAEMIA [None]
  - HEMIPARESIS [None]
  - ANASTOMOTIC ULCER HAEMORRHAGE [None]
  - DEPRESSION [None]
  - DRUG DOSE OMISSION [None]
  - ANXIETY [None]
  - DISCOMFORT [None]
  - ASTHENIA [None]
  - PRESYNCOPE [None]
  - DYSPNOEA PAROXYSMAL NOCTURNAL [None]
  - ARTHRALGIA [None]
